FAERS Safety Report 14169711 (Version 1)
Quarter: 2017Q4

REPORT INFORMATION
  Report Type: Spontaneous
  Country: US (occurrence: US)
  Receive Date: 20171108
  Receipt Date: 20171108
  Transmission Date: 20180321
  Serious: No
  Sender: FDA-Public Use
  Company Number: US-MISSION PHARMACAL COMPANY-2033523

PATIENT

DRUGS (4)
  1. BUMEX [Concomitant]
     Active Substance: BUMETANIDE
     Route: 065
  2. STERIODS [Concomitant]
     Active Substance: UNSPECIFIED INGREDIENT
     Route: 065
  3. SPIRONOLACTONE. [Concomitant]
     Active Substance: SPIRONOLACTONE
     Route: 065
  4. THIOLA [Suspect]
     Active Substance: TIOPRONIN
     Indication: CYSTINURIA
     Route: 065
     Dates: start: 20140906

REACTIONS (1)
  - Nephrotic syndrome [Recovering/Resolving]
